FAERS Safety Report 5391476-4 (Version None)
Quarter: 2007Q3

REPORT INFORMATION
  Report Type: 
  Country: None (occurrence: None)
  Receive Date: 20070719
  Receipt Date: 20070711
  Transmission Date: 20080115
  Serious: Yes (Disabling)
  Sender: FDA-Public Use
  Company Number: AU-PURDUE-USA_2007_0028231

PATIENT
  Age: 61 Year
  Sex: Female

DRUGS (1)
  1. OXYIR [Suspect]
     Indication: PAIN
     Dosage: 5 MG, BID
     Route: 048
     Dates: start: 20070413, end: 20070414

REACTIONS (2)
  - CHEST PAIN [None]
  - VOMITING [None]
